FAERS Safety Report 7762184-7 (Version None)
Quarter: 2011Q3

REPORT INFORMATION
  Report Type: 
  Country: None (occurrence: None)
  Receive Date: 20110920
  Receipt Date: 20110914
  Transmission Date: 20111222
  Serious: Yes (Other)
  Sender: FDA-Public Use
  Company Number: FR-KINGPHARMUSA00001-K201101076

PATIENT
  Age: 74 Year
  Sex: Female

DRUGS (15)
  1. LEVOTHYROXINE SODIUM [Concomitant]
     Dosage: UNK
     Dates: start: 20110601, end: 20110825
  2. INFLUENZA VIRUS VACCINE [Concomitant]
  3. AMITRIPTYLINE HYDROCHLORIDE [Concomitant]
     Dosage: UNK
     Dates: start: 20110601, end: 20110630
  4. ASPIRIN [Concomitant]
     Dosage: UNK
     Dates: start: 20110601, end: 20110630
  5. HYDROXOCOBALAMIN [Concomitant]
     Dosage: UNK
     Dates: start: 20110620, end: 20110621
  6. RISEDRONATE SODIUM [Concomitant]
     Dosage: UNK
     Dates: start: 20110601, end: 20110630
  7. CETIRIZINE HCL [Concomitant]
     Dosage: UNK
     Dates: start: 20110513, end: 20110610
  8. ACETAMINOPHEN [Concomitant]
     Dosage: UNK
     Dates: start: 20110728, end: 20110825
  9. ALTACE [Suspect]
     Dosage: UNK
     Route: 048
  10. ALCLOMETASONE DIPROPIONATE [Concomitant]
     Dosage: UNK
     Dates: start: 20110621, end: 20110802
  11. DILTIAZEM HCL [Concomitant]
     Dosage: UNK
     Dates: start: 20110513, end: 20110623
  12. TRAMADOL HCL [Concomitant]
     Dosage: UNK
     Dates: start: 20110601, end: 20110630
  13. FLUOROURACIL [Concomitant]
     Dosage: UNK
     Dates: start: 20110621, end: 20110802
  14. SIMVASTATIN [Concomitant]
     Dosage: UNK
     Dates: start: 20110601, end: 20110825
  15. ISPAGHULA HUSK [Concomitant]
     Dosage: UNK
     Dates: start: 20110601, end: 20110630

REACTIONS (1)
  - RESTLESSNESS [None]
